FAERS Safety Report 4691362-9 (Version None)
Quarter: 2005Q2

REPORT INFORMATION
  Report Type: 
  Country: None (occurrence: None)
  Receive Date: 20050615
  Receipt Date: 20050602
  Transmission Date: 20051028
  Serious: Yes (Hospitalization, Other)
  Sender: FDA-Public Use
  Company Number: 200512315BCC

PATIENT
  Age: 76 Year
  Sex: Female
  Weight: 49.8957 kg

DRUGS (9)
  1. ASPIRIN [Suspect]
     Dosage: 325 MG, QD, ORAL
     Route: 048
     Dates: end: 20041101
  2. DIOVAN [Concomitant]
  3. PLAVIX [Concomitant]
  4. ZOCOR [Concomitant]
  5. LASIX [Concomitant]
  6. AMIODARONE [Concomitant]
  7. ACIPHEX [Concomitant]
  8. POTASSIUM CHLORIDE [Concomitant]
  9. SPIRIVA [Concomitant]

REACTIONS (3)
  - ANAEMIA [None]
  - ARTERIAL OCCLUSIVE DISEASE [None]
  - GASTRIC ULCER HAEMORRHAGE [None]
